FAERS Safety Report 6038116-9 (Version None)
Quarter: 2009Q1

REPORT INFORMATION
  Report Type: 
  Country: None (occurrence: None)
  Receive Date: 20090113
  Receipt Date: 20090113
  Transmission Date: 20090719
  Serious: Yes (Other)
  Sender: FDA-Public Use
  Company Number: None

PATIENT
  Sex: Female
  Weight: 75.2971 kg

DRUGS (2)
  1. AMBIEN CR [Suspect]
     Indication: INSOMNIA
     Dosage: 1 QHS PO
     Route: 048
     Dates: start: 20080812, end: 20081106
  2. AMBIEN [Suspect]
     Indication: INSOMNIA
     Dosage: 1 QHS PO
     Route: 048
     Dates: end: 20081106

REACTIONS (5)
  - EYE MOVEMENT DISORDER [None]
  - FEELING ABNORMAL [None]
  - IMPAIRED WORK ABILITY [None]
  - THOUGHT BLOCKING [None]
  - VESTIBULAR NEURONITIS [None]
